FAERS Safety Report 21447846 (Version 2)
Quarter: 2022Q4

REPORT INFORMATION
  Report Type: Spontaneous
  Country: JP (occurrence: JP)
  Receive Date: 20221012
  Receipt Date: 20221128
  Transmission Date: 20230113
  Serious: Yes (Other)
  Sender: FDA-Public Use
  Company Number: JP-NEUROCRINE BIOSCIENCES INC.-2022NBI04943

PATIENT

DRUGS (14)
  1. VALBENAZINE [Suspect]
     Active Substance: VALBENAZINE
     Indication: Tardive dyskinesia
     Dosage: 40 MILLIGRAM, QD
     Route: 048
     Dates: start: 20220622, end: 20220713
  2. BLONANSERIN [Concomitant]
     Active Substance: BLONANSERIN
     Dosage: UNK
     Dates: start: 20220113, end: 20220206
  3. PALIPERIDONE PALMITATE [Concomitant]
     Active Substance: PALIPERIDONE PALMITATE
     Indication: Schizophrenia
     Dosage: UNKNOWN
     Route: 065
     Dates: start: 20220207
  4. POTASSIUM ASPARTATE [Concomitant]
     Active Substance: POTASSIUM ASPARTATE
     Indication: Hypokalaemia
     Dosage: UNKNOWN
     Route: 065
     Dates: start: 20220406
  5. JANUVIA [Concomitant]
     Active Substance: SITAGLIPTIN PHOSPHATE
     Indication: Diabetes mellitus
     Dosage: UNKNOWN
     Route: 065
     Dates: start: 20220608, end: 20220712
  6. TRULICITY [Concomitant]
     Active Substance: DULAGLUTIDE
     Dosage: UNKNOWN
     Route: 065
     Dates: start: 20220216, end: 20220601
  7. RISPERIDONE [Concomitant]
     Active Substance: RISPERIDONE
     Dosage: UNKNOWN
     Route: 065
  8. BREXPIPRAZOLE [Concomitant]
     Active Substance: BREXPIPRAZOLE
     Dosage: UNKNOWN
     Route: 065
     Dates: start: 20220216, end: 20220601
  9. LURASIDONE HYDROCHLORIDE [Concomitant]
     Active Substance: LURASIDONE HYDROCHLORIDE
     Dosage: UNKNOWN
     Route: 065
  10. BLONANSERIN [Concomitant]
     Active Substance: BLONANSERIN
     Dosage: UNKNOWN
     Route: 065
     Dates: start: 20220216, end: 20220601
  11. LEMBOREXANT [Concomitant]
     Active Substance: LEMBOREXANT
     Dosage: UNKNOWN
     Route: 065
  12. SUVOREXANT [Concomitant]
     Active Substance: SUVOREXANT
     Dosage: UNKNOWN
     Route: 065
  13. METFORMIN HYDROCHLORIDE [Concomitant]
     Active Substance: METFORMIN HYDROCHLORIDE
     Dosage: UNKNOWN
     Route: 065
  14. SITAGLIPTIN PHOSPHATE [Concomitant]
     Active Substance: SITAGLIPTIN PHOSPHATE
     Indication: Diabetes mellitus
     Dosage: UNKNOWN
     Route: 065
     Dates: start: 20220608, end: 20220712

REACTIONS (5)
  - Haemorrhage subcutaneous [Recovered/Resolved]
  - Fall [Recovered/Resolved]
  - Abnormal behaviour [Recovered/Resolved]
  - Skin abrasion [Recovered/Resolved]
  - Anal incontinence [Recovered/Resolved]

NARRATIVE: CASE EVENT DATE: 20220625
